FAERS Safety Report 17635316 (Version 1)
Quarter: 2020Q2

REPORT INFORMATION
  Report Type: Other
  Country: FR (occurrence: FR)
  Receive Date: 20200406
  Receipt Date: 20200406
  Transmission Date: 20200713
  Serious: Yes (Other)
  Sender: FDA-Public Use
  Company Number: FR-ALSI-202000104

PATIENT
  Age: 13 Year
  Sex: Female

DRUGS (2)
  1. NITROUS OXIDE. [Suspect]
     Active Substance: NITROUS OXIDE
     Indication: SICKLE CELL DISEASE
     Route: 055
  2. NITROUS OXIDE. [Suspect]
     Active Substance: NITROUS OXIDE
     Indication: OFF LABEL USE
     Route: 055

REACTIONS (5)
  - Neuropathy peripheral [Recovered/Resolved]
  - Hyperhomocysteinaemia [Recovered/Resolved]
  - Anaemia [Not Recovered/Not Resolved]
  - Amino acid level increased [Not Recovered/Not Resolved]
  - Off label use [Unknown]
